FAERS Safety Report 16471284 (Version 4)
Quarter: 2019Q4

REPORT INFORMATION
  Report Type: Spontaneous
  Country: US (occurrence: US)
  Receive Date: 20190624
  Receipt Date: 20191015
  Transmission Date: 20200122
  Serious: No
  Sender: FDA-Public Use
  Company Number: US-SA-2019SA171220

PATIENT
  Age: 52 Year
  Sex: Female

DRUGS (1)
  1. KEVZARA [Suspect]
     Active Substance: SARILUMAB
     Dosage: 200 MG, QOW
     Route: 058
     Dates: start: 201905

REACTIONS (9)
  - Injection site reaction [Unknown]
  - Injection site swelling [Unknown]
  - Pain [Unknown]
  - Injection site erythema [Recovered/Resolved]
  - Injection site discolouration [Unknown]
  - Contusion [Recovered/Resolved]
  - Muscle spasms [Unknown]
  - Injection site pain [Unknown]
  - Rash macular [Unknown]

NARRATIVE: CASE EVENT DATE: 2019
